FAERS Safety Report 7332148-6 (Version None)
Quarter: 2011Q1

REPORT INFORMATION
  Report Type: 
  Country: None (occurrence: None)
  Receive Date: 20110222
  Receipt Date: 20110208
  Transmission Date: 20110831
  Serious: Yes (Other)
  Sender: FDA-Public Use
  Company Number: MC201100051

PATIENT
  Age: 62 Year
  Sex: Male

DRUGS (3)
  1. ANGIOMAX [Suspect]
     Indication: PERCUTANEOUS CORONARY INTERVENTION
  2. PLAVIX [Concomitant]
  3. ASPIRIN [Concomitant]

REACTIONS (9)
  - CORONARY ARTERY PERFORATION [None]
  - HYPOTENSION [None]
  - CARDIAC TAMPONADE [None]
  - ANGINA PECTORIS [None]
  - DEVICE OCCLUSION [None]
  - CARDIAC FAILURE CONGESTIVE [None]
  - CORONARY ARTERY OCCLUSION [None]
  - CORONARY ARTERY STENOSIS [None]
  - CARDIOGENIC SHOCK [None]
